FAERS Safety Report 6227771-6 (Version None)
Quarter: 2009Q2

REPORT INFORMATION
  Report Type: 
  Country: None (occurrence: None)
  Receive Date: 20090612
  Receipt Date: 20090601
  Transmission Date: 20091009
  Serious: Yes (Other)
  Sender: FDA-Public Use
  Company Number: GB-ELI_LILLY_AND_COMPANY-GB200905003466

PATIENT
  Age: 19 Year
  Sex: Male
  Weight: 65 kg

DRUGS (2)
  1. ZYPREXA [Suspect]
     Indication: ACUTE PSYCHOSIS
     Dosage: UNK, UNK
     Route: 048
     Dates: start: 20090301
  2. RISPERIDONE [Concomitant]
     Indication: ACUTE PSYCHOSIS
     Dosage: 4 MG, DAILY (1/D)
     Route: 048
     Dates: start: 20090101, end: 20090323

REACTIONS (1)
  - TINNITUS [None]
